FAERS Safety Report 23237002 (Version 2)
Quarter: 2023Q4

REPORT INFORMATION
  Report Type: Spontaneous
  Country: JP (occurrence: JP)
  Receive Date: 20231128
  Receipt Date: 20231222
  Transmission Date: 20240109
  Serious: Yes (Hospitalization, Other)
  Sender: FDA-Public Use
  Company Number: JP-BAYER-2023A163884

PATIENT
  Age: 77 Year
  Sex: Female
  Weight: 44.2 kg

DRUGS (12)
  1. STIVARGA [Suspect]
     Active Substance: REGORAFENIB
     Indication: Colorectal cancer recurrent
     Dosage: 160 MG, QD
     Route: 048
     Dates: start: 20231025, end: 20231108
  2. CEFTRIAXONE [Suspect]
     Active Substance: CEFTRIAXONE\CEFTRIAXONE SODIUM
     Indication: Infection
     Dosage: 2 G, QD
     Route: 042
     Dates: start: 20231109, end: 20231113
  3. INFLUENZA VIRUS VACCINE [Concomitant]
     Active Substance: INFLUENZA VIRUS VACCINE
     Dosage: UNK UNK, ONCE
     Dates: start: 20231025, end: 20231025
  4. ZINC ACETATE [Concomitant]
     Active Substance: ZINC ACETATE
     Dosage: 2 TABLETS, BID
  5. MIYA-BM [Concomitant]
     Active Substance: CLOSTRIDIUM BUTYRICUM SPORES STRAIN M-55
     Dosage: 6 TABLETS, TID
  6. SODIUM GUALENATE MONOHYDRATE [Concomitant]
     Active Substance: SODIUM GUALENATE MONOHYDRATE
     Dosage: 5ML, PRN
  7. CP COMBINATION [Concomitant]
     Dosage: 3G, TID
  8. BISOPROLOL FUMARATE [Concomitant]
     Active Substance: BISOPROLOL FUMARATE
     Dosage: 1 DF, QD
  9. NICORANDIL [Concomitant]
     Active Substance: NICORANDIL
     Dosage: 2 TABLETS, BID
  10. ASPIRIN\VONOPRAZAN FUMARATE [Concomitant]
     Active Substance: ASPIRIN\VONOPRAZAN FUMARATE
     Dosage: 1 DF, QD
  11. AMLODIPINE [Concomitant]
     Active Substance: AMLODIPINE BESYLATE
     Dosage: 1 DF, QD
  12. BROTIZOLAM [Concomitant]
     Active Substance: BROTIZOLAM
     Dosage: 0.5 DF, QD

REACTIONS (25)
  - Cytokine storm [Recovering/Resolving]
  - Myelosuppression [None]
  - Disseminated intravascular coagulation [Recovered/Resolved]
  - Ascites [None]
  - Pyrexia [Recovering/Resolving]
  - Headache [None]
  - Dizziness [None]
  - Platelet count decreased [Recovering/Resolving]
  - Dehydration [None]
  - Malaise [None]
  - Eating disorder [None]
  - Stomatitis [None]
  - Oral pain [None]
  - Chills [None]
  - Eyelid oedema [None]
  - Oedema peripheral [None]
  - Rash [Recovering/Resolving]
  - Liver disorder [Recovering/Resolving]
  - Cholelithiasis [None]
  - Rash erythematous [None]
  - Papule [None]
  - Erythema [None]
  - Pruritus [Recovering/Resolving]
  - Mouth injury [None]
  - Fibrin D dimer increased [Recovering/Resolving]

NARRATIVE: CASE EVENT DATE: 20231105
